FAERS Safety Report 5424075-6 (Version None)
Quarter: 2007Q3

REPORT INFORMATION
  Report Type: 
  Country: None (occurrence: None)
  Receive Date: 20070727
  Receipt Date: 20061012
  Transmission Date: 20080115
  Serious: Yes (Hospitalization)
  Sender: FDA-Public Use
  Company Number: THYM-10621

PATIENT
  Age: 47 Year
  Sex: Female
  Weight: 88 kg

DRUGS (13)
  1. THYMOGLOBULIN [Suspect]
     Indication: RENAL TRANSPLANT
     Dosage: 2.5 MG/KG QD IV
     Route: 042
     Dates: start: 20041012, end: 20041012
  2. THYMOGLOBULIN [Suspect]
     Indication: RENAL TRANSPLANT
     Dosage: 1.5 MG/KG QD IV
     Route: 042
     Dates: start: 20041013, end: 20041016
  3. NEORAL [Suspect]
     Indication: IMMUNOSUPPRESSION
     Dosage: 400 MG QD PO
     Route: 048
     Dates: start: 20041012
  4. CELLCEPT [Suspect]
     Indication: IMMUNOSUPPRESSION
     Dosage: 2 G QD
     Dates: start: 20041012
  5. SOLU-MEDROL [Suspect]
     Indication: IMMUNOSUPPRESSION
     Dosage: 1 MG/KG DAILY
     Dates: start: 20041013, end: 20041022
  6. SOLU-MEDROL [Suspect]
     Indication: IMMUNOSUPPRESSION
     Dates: start: 20041023, end: 20041110
  7. SOLU-MEDROL [Suspect]
     Indication: IMMUNOSUPPRESSION
     Dosage: 0.3 MG/KG DAILY
     Dates: start: 20041111, end: 20041111
  8. SOLU-MEDROL [Suspect]
     Indication: IMMUNOSUPPRESSION
     Dates: start: 20041112, end: 20041210
  9. SOLU-MEDROL [Suspect]
     Indication: IMMUNOSUPPRESSION
     Dosage: 10 M G DAILY
     Dates: start: 20041211, end: 20041211
  10. SOLU-MEDROL [Suspect]
     Indication: IMMUNOSUPPRESSION
     Dates: start: 20041212, end: 20050109
  11. SOLU-MEDROL [Suspect]
     Indication: IMMUNOSUPPRESSION
     Dosage: 5 MG DAILY
     Dates: start: 20050110
  12. POLARAMINE [Concomitant]
  13. METHYLPREDNISOLONE [Concomitant]

REACTIONS (1)
  - SQUAMOUS CELL CARCINOMA [None]
